FAERS Safety Report 20849387 (Version 1)
Quarter: 2022Q2

REPORT INFORMATION
  Report Type: Spontaneous
  Country: IT (occurrence: IT)
  Receive Date: 20220519
  Receipt Date: 20220519
  Transmission Date: 20220721
  Serious: Yes (Other)
  Sender: FDA-Public Use
  Company Number: IT-CELLTRION HEALTHCARE HUNGARY KFT-2022IT005541

PATIENT

DRUGS (4)
  1. PREDNISONE [Suspect]
     Active Substance: PREDNISONE
     Indication: Takayasu^s arteritis
     Dosage: 5 MILLIGRAM, QD (5 MG, DAILY)
  2. METHOTREXATE [Suspect]
     Active Substance: METHOTREXATE
     Indication: Takayasu^s arteritis
     Dosage: 20 MILLIGRAM, QW (20 MILLIGRAM, WEEKLY)
  3. INFLIXIMAB [Suspect]
     Active Substance: INFLIXIMAB
     Indication: Takayasu^s arteritis
     Dosage: 5 MG/KG, AT 0, 2, AND 6 WEEKS, AND THEN AT EVERY 6 WEEKS (INITIAL DOSE)
     Route: 042
  4. INFLIXIMAB [Suspect]
     Active Substance: INFLIXIMAB
     Dosage: 10 MILLIGRAM/KILOGRAM (10 MG/KG, EVERY 6 WEEKS (HIGH DOSE))
     Route: 042

REACTIONS (3)
  - Peritonitis [Recovered/Resolved]
  - Off label use [Unknown]
  - Drug effective for unapproved indication [Unknown]
